FAERS Safety Report 8620271-5 (Version None)
Quarter: 2012Q3

REPORT INFORMATION
  Report Type: 
  Country: None (occurrence: None)
  Receive Date: 20120824
  Receipt Date: 20120816
  Transmission Date: 20120928
  Serious: Yes (Hospitalization)
  Sender: FDA-Public Use
  Company Number: BR-US-EMD SERONO, INC.-7155339

PATIENT
  Sex: Female

DRUGS (1)
  1. REBIF [Suspect]
     Indication: MULTIPLE SCLEROSIS
     Dates: start: 20120301, end: 20120815

REACTIONS (8)
  - DYSPNOEA [None]
  - LIMB DISCOMFORT [None]
  - INSOMNIA [None]
  - FEELING COLD [None]
  - WEIGHT DECREASED [None]
  - PAIN [None]
  - ASTHENIA [None]
  - DECREASED APPETITE [None]
